FAERS Safety Report 5674983-6 (Version None)
Quarter: 2008Q1

REPORT INFORMATION
  Report Type: 
  Country: None (occurrence: None)
  Receive Date: 20080320
  Receipt Date: 20080312
  Transmission Date: 20080703
  Serious: Yes (Death, Hospitalization, Other)
  Sender: FDA-Public Use
  Company Number: US-BAYER-200812103NA

PATIENT
  Sex: Female

DRUGS (6)
  1. SORAFENIB [Suspect]
     Indication: MEDULLARY THYROID CANCER
     Dosage: TOTAL DAILY DOSE: 800 MG  UNIT DOSE: 200 MG
     Route: 048
     Dates: start: 20070810, end: 20070925
  2. SORAFENIB [Suspect]
     Dosage: TOTAL DAILY DOSE: 800 MG  UNIT DOSE: 200 MG
     Route: 048
     Dates: start: 20070927, end: 20070930
  3. SORAFENIB [Suspect]
     Dosage: TOTAL DAILY DOSE: 400 MG  UNIT DOSE: 200 MG
     Route: 048
     Dates: start: 20071004, end: 20071101
  4. CALCITRATE [Concomitant]
  5. VITAMIN D [Concomitant]
  6. SYNTHROID [Concomitant]

REACTIONS (3)
  - HEPATIC FAILURE [None]
  - HEPATOTOXICITY [None]
  - RENAL FAILURE [None]
